FAERS Safety Report 21416220 (Version 1)
Quarter: 2022Q4

REPORT INFORMATION
  Report Type: Spontaneous
  Country: CA (occurrence: CA)
  Receive Date: 20221006
  Receipt Date: 20221006
  Transmission Date: 20230112
  Serious: Yes (Hospitalization)
  Sender: FDA-Public Use
  Company Number: None

PATIENT
  Age: 65 Year
  Sex: Male
  Weight: 102 kg

DRUGS (22)
  1. FLUOROURACIL [Suspect]
     Active Substance: FLUOROURACIL
     Indication: Pancreatic carcinoma
     Dosage: CYCLICAL
  2. OXALIPLATIN [Suspect]
     Active Substance: OXALIPLATIN
     Indication: Pancreatic carcinoma
     Dosage: CYCLICAL
  3. IRINOTECAN HYDROCHLORIDE [Suspect]
     Active Substance: IRINOTECAN HYDROCHLORIDE
     Indication: Pancreatic carcinoma
     Dosage: CYCLICAL
     Route: 042
  4. LEUCOVORIN [Suspect]
     Active Substance: LEUCOVORIN
     Indication: Pancreatic carcinoma
     Dosage: CYCLICAL
  5. ACETAMINOPHEN [Concomitant]
     Active Substance: ACETAMINOPHEN
  6. AMIODARONE [Concomitant]
     Active Substance: AMIODARONE
  7. ATROPINE [Concomitant]
     Active Substance: ATROPINE
  8. BISOPROLOL [Concomitant]
     Active Substance: BISOPROLOL
     Route: 065
  9. DEXAMETHASONE [Concomitant]
     Active Substance: DEXAMETHASONE
     Route: 014
  10. HYDROMORPHONE [Concomitant]
     Active Substance: HYDROMORPHONE
  11. LACTULOSE [Concomitant]
     Active Substance: LACTULOSE
  12. EDOXABAN [Concomitant]
     Active Substance: EDOXABAN
  13. LOPERAMIDE [Concomitant]
     Active Substance: LOPERAMIDE
  14. LORAZEPAM [Concomitant]
     Active Substance: LORAZEPAM
     Route: 065
  15. OLANZAPINE [Concomitant]
     Active Substance: OLANZAPINE
  16. ONDANSETRON [Concomitant]
     Active Substance: ONDANSETRON
  17. PANTOPRAZOLE [Concomitant]
     Active Substance: PANTOPRAZOLE
     Dosage: POWDER FOR SOLUTION
     Route: 042
  18. POLYETHYLENE GLYCOL [Concomitant]
     Active Substance: POLYETHYLENE GLYCOL
  19. PREGABALIN [Concomitant]
     Active Substance: PREGABALIN
  20. PROCHLORPERAZINE [Concomitant]
     Active Substance: PROCHLORPERAZINE
  21. TRANDOLAPRIL [Concomitant]
     Active Substance: TRANDOLAPRIL
  22. ZOPICLONE [Concomitant]
     Active Substance: ZOPICLONE

REACTIONS (2)
  - Febrile neutropenia [Recovered/Resolved]
  - Gastroenteritis Escherichia coli [Recovered/Resolved]
